FAERS Safety Report 24735093 (Version 1)
Quarter: 2024Q4

REPORT INFORMATION
  Report Type: Spontaneous
  Country: US (occurrence: US)
  Receive Date: 20241215
  Receipt Date: 20241215
  Transmission Date: 20250115
  Serious: No
  Sender: SANOFI AVENTIS
  Company Number: US-SA-2024SA368626

PATIENT
  Age: 22 Year
  Sex: Male
  Weight: 103.64 kg

DRUGS (15)
  1. DUPIXENT [Suspect]
     Active Substance: DUPILUMAB
     Indication: Eosinophilic oesophagitis
     Dosage: 300 MG, QW
     Route: 058
     Dates: start: 202409
  2. BOTOX [Concomitant]
     Active Substance: ONABOTULINUMTOXINA
  3. KETOCONAZOLE [Concomitant]
     Active Substance: KETOCONAZOLE
  4. DEXTROAMPHETAMINE [Concomitant]
     Active Substance: DEXTROAMPHETAMINE
  5. ALPRAZOLAM [Concomitant]
     Active Substance: ALPRAZOLAM
  6. CLINDAMYCIN PHOSPHATE [Concomitant]
     Active Substance: CLINDAMYCIN PHOSPHATE
  7. ZOLPIDEM TARTRATE [Concomitant]
     Active Substance: ZOLPIDEM TARTRATE
  8. FLUARIX NOS [Concomitant]
     Active Substance: INFLUENZA VIRUS VACCINE
  9. TESTOSTERONE CYPIONATE [Concomitant]
     Active Substance: TESTOSTERONE CYPIONATE
  10. OMEPRAZOLE [Concomitant]
     Active Substance: OMEPRAZOLE
  11. FAMOTIDINE [Concomitant]
     Active Substance: FAMOTIDINE
  12. METHYLPREDNISOLONE [Concomitant]
     Active Substance: METHYLPREDNISOLONE
  13. TRETINOIN [Concomitant]
     Active Substance: TRETINOIN
     Dosage: UNK
  14. TESTOSTERONE [Concomitant]
     Active Substance: TESTOSTERONE
  15. LIDOCAINE [Concomitant]
     Active Substance: LIDOCAINE

REACTIONS (2)
  - Vertigo [Unknown]
  - Headache [Unknown]

NARRATIVE: CASE EVENT DATE: 20241101
